FAERS Safety Report 8537037-7 (Version None)
Quarter: 2012Q3

REPORT INFORMATION
  Report Type: 
  Country: None (occurrence: None)
  Receive Date: 20120725
  Receipt Date: 20120718
  Transmission Date: 20120928
  Serious: Yes (Other)
  Sender: FDA-Public Use
  Company Number: FR-PFIZER INC-2012172850

PATIENT
  Age: 53 Year
  Sex: Female

DRUGS (4)
  1. PREVISCAN [Interacting]
     Dosage: UNK
     Route: 048
     Dates: start: 20120203, end: 20120213
  2. LOVENOX [Concomitant]
     Indication: ANTICOAGULANT THERAPY
     Dosage: UNK
     Dates: start: 20120127, end: 20120202
  3. CLINDAMYCIN HCL [Suspect]
     Dosage: UNK
     Route: 048
     Dates: start: 20120203, end: 20120212
  4. CALCIPARINE [Concomitant]
     Indication: ANTICOAGULANT THERAPY
     Dosage: UNK
     Dates: start: 20120203, end: 20120207

REACTIONS (2)
  - ABDOMINAL WALL HAEMATOMA [None]
  - DRUG INTERACTION [None]
